FAERS Safety Report 6678187-X (Version None)
Quarter: 2010Q2

REPORT INFORMATION
  Report Type: 
  Country: None (occurrence: None)
  Receive Date: 20100408
  Receipt Date: 20100408
  Transmission Date: 20101027
  Serious: No
  Sender: FDA-Public Use
  Company Number: None

PATIENT
  Sex: Female
  Weight: 96.8 kg

DRUGS (3)
  1. FLUOROURACIL [Suspect]
     Dosage: 8360 MG
  2. CISPLATIN [Suspect]
     Dosage: 75 MG
  3. ERBITUX [Suspect]
     Dosage: 2928 MG

REACTIONS (3)
  - BLISTER [None]
  - DERMATITIS [None]
  - DIARRHOEA [None]
